FAERS Safety Report 10103260 (Version 1)
Quarter: 2014Q2

REPORT INFORMATION
  Report Type: Spontaneous
  Country: JP (occurrence: JP)
  Receive Date: 20140424
  Receipt Date: 20140424
  Transmission Date: 20141212
  Serious: Yes (Other)
  Sender: FDA-Public Use
  Company Number: JP-GLAXOSMITHKLINE-B0987235A

PATIENT
  Age: 49 Year
  Sex: Male

DRUGS (2)
  1. ARIXTRA [Suspect]
     Indication: THROMBOSIS PROPHYLAXIS
     Dosage: 1.5MG PER DAY
     Route: 058
     Dates: start: 20140402, end: 20140407
  2. VOLTAREN [Suspect]
     Indication: PAIN
     Route: 065
     Dates: start: 20140402, end: 20140405

REACTIONS (2)
  - Gastrointestinal haemorrhage [Recovered/Resolved]
  - Occult blood [Unknown]
